FAERS Safety Report 5848079-4 (Version None)
Quarter: 2008Q3

REPORT INFORMATION
  Report Type: 
  Country: None (occurrence: None)
  Receive Date: 20080814
  Receipt Date: 20080814
  Transmission Date: 20090109
  Serious: Yes (Hospitalization)
  Sender: FDA-Public Use
  Company Number: None

PATIENT
  Sex: Male
  Weight: 77.7 kg

DRUGS (2)
  1. GEMCITABINE [Suspect]
     Indication: HEAD AND NECK CANCER
     Dosage: 3000MG/M2, Q 2 WKS, IV
     Route: 042
     Dates: start: 20071030, end: 20080326
  2. DOCETAXEL [Suspect]
     Indication: HEAD AND NECK CANCER
     Dosage: 60MG/M2, Q 2 WKS, IV
     Route: 042
     Dates: start: 20071030, end: 20080326

REACTIONS (1)
  - DEEP VEIN THROMBOSIS [None]
